FAERS Safety Report 12174026 (Version 1)
Quarter: 2016Q1

REPORT INFORMATION
  Report Type: Spontaneous
  Country: DZ (occurrence: DZ)
  Receive Date: 20160314
  Receipt Date: 20160314
  Transmission Date: 20160526
  Serious: Yes (Other)
  Sender: FDA-Public Use
  Company Number: DZ-ROCHE-1725207

PATIENT
  Age: 29 Year
  Sex: Male

DRUGS (3)
  1. COPEGUS [Suspect]
     Active Substance: RIBAVIRIN
     Dosage: 600 MG ONCE PER WEEK
     Route: 048
     Dates: end: 20160224
  2. COPEGUS [Suspect]
     Active Substance: RIBAVIRIN
     Indication: HEPATITIS C
     Dosage: 600 MG ONCE PER DAY
     Route: 048
     Dates: start: 20151201
  3. PEGASYS [Suspect]
     Active Substance: PEGINTERFERON ALFA-2A
     Indication: HEPATITIS C
     Dosage: 90 MCG ONCE PER WEEK
     Route: 058
     Dates: start: 20151201, end: 20160224

REACTIONS (4)
  - Anaemia [Unknown]
  - Renal impairment [Unknown]
  - Ascites [Unknown]
  - General physical health deterioration [Unknown]
